FAERS Safety Report 17821293 (Version 1)
Quarter: 2020Q2

REPORT INFORMATION
  Report Type: Spontaneous
  Country: CA (occurrence: CA)
  Receive Date: 20200525
  Receipt Date: 20200525
  Transmission Date: 20200714
  Serious: Yes (Other)
  Sender: FDA-Public Use
  Company Number: CA-US WORLDMEDS, LLC-E2B_00003312

PATIENT
  Age: 82 Year
  Sex: Male

DRUGS (5)
  1. SAFINAMIDE [Suspect]
     Active Substance: SAFINAMIDE
     Route: 048
     Dates: start: 2020
  2. APO-LEVOCARB [Concomitant]
     Active Substance: CARBIDOPA\LEVODOPA
     Route: 065
  3. PRAMIPEXOLE. [Concomitant]
     Active Substance: PRAMIPEXOLE
     Route: 065
  4. SAFINAMIDE [Suspect]
     Active Substance: SAFINAMIDE
     Indication: PRODUCT USED FOR UNKNOWN INDICATION
     Route: 048
     Dates: start: 20200414
  5. ENTACAPONE. [Concomitant]
     Active Substance: ENTACAPONE
     Route: 065

REACTIONS (3)
  - Muscle rigidity [Unknown]
  - Condition aggravated [Unknown]
  - Tremor [Unknown]

NARRATIVE: CASE EVENT DATE: 20200428
